FAERS Safety Report 6364791-5 (Version None)
Quarter: 2009Q3

REPORT INFORMATION
  Report Type: 
  Country: None (occurrence: None)
  Receive Date: 20090919
  Receipt Date: 20090728
  Transmission Date: 20100115
  Serious: No
  Sender: FDA-Public Use
  Company Number: US-ABBOTT-09P-163-0588431-00

PATIENT
  Sex: Female
  Weight: 61.744 kg

DRUGS (4)
  1. HUMIRA [Suspect]
     Indication: CROHN'S DISEASE
     Dates: start: 20090101
  2. VALTREX [Concomitant]
     Indication: PROPHYLAXIS
     Route: 048
  3. CELEXA [Concomitant]
     Indication: PROPHYLAXIS
  4. CELEXA [Concomitant]
     Indication: ABDOMINAL PAIN UPPER

REACTIONS (1)
  - SKIN DISCOLOURATION [None]
